FAERS Safety Report 7608535-5 (Version None)
Quarter: 2011Q3

REPORT INFORMATION
  Report Type: 
  Country: None (occurrence: None)
  Receive Date: 20110714
  Receipt Date: 20110630
  Transmission Date: 20111222
  Serious: Yes (Other)
  Sender: FDA-Public Use
  Company Number: PHFR2011GB02726

PATIENT
  Sex: Female

DRUGS (5)
  1. SERTRALINE [Concomitant]
     Dosage: 100 MG, DAILY
     Route: 048
  2. DEPAKOTE [Concomitant]
     Dosage: 750 MG, DAILY
     Route: 048
  3. CLOZAPINE [Suspect]
     Indication: SCHIZOPHRENIA
     Dosage: 300 MG, DAILY
     Route: 048
     Dates: start: 20110411, end: 20110516
  4. ZOPICLONE [Concomitant]
     Dosage: 7.5 MG, DAILY
     Route: 048
  5. METHADONE HCL [Concomitant]
     Dosage: 75 MG, DAILY
     Route: 048

REACTIONS (7)
  - TACHYCARDIA [None]
  - CONFUSIONAL STATE [None]
  - URINARY INCONTINENCE [None]
  - C-REACTIVE PROTEIN INCREASED [None]
  - ABNORMAL BEHAVIOUR [None]
  - BLOOD ALKALINE PHOSPHATASE INCREASED [None]
  - SALIVARY HYPERSECRETION [None]
